FAERS Safety Report 13278422 (Version 5)
Quarter: 2017Q4

REPORT INFORMATION
  Report Type: Report from Study
  Country: US (occurrence: BR)
  Receive Date: 20170228
  Receipt Date: 20171113
  Transmission Date: 20180320
  Serious: Yes (Hospitalization, Other)
  Sender: FDA-Public Use
  Company Number: US-SUNOVION-2017SUN000867

PATIENT
  Sex: Female
  Weight: 100 kg

DRUGS (5)
  1. INDACATEROL AND GLYCOPYRROLATE [Suspect]
     Active Substance: GLYCOPYRROLATE\INDACATEROL MALEATE
     Indication: CHRONIC OBSTRUCTIVE PULMONARY DISEASE
     Dosage: 1 DF(50 UG GLYCOPYRRONIUM BROMIDE, 110 UG INDACATEROL), QD
     Route: 055
     Dates: start: 201610
  2. OXCARBAZEPINE. [Concomitant]
     Active Substance: OXCARBAZEPINE
  3. OXYGEN. [Concomitant]
     Active Substance: OXYGEN
  4. LOSARTAN. [Concomitant]
     Active Substance: LOSARTAN
     Dosage: 50 MG, UNK
  5. INDACATEROL AND GLYCOPYRROLATE [Suspect]
     Active Substance: GLYCOPYRROLATE\INDACATEROL MALEATE
     Indication: EMPHYSEMA

REACTIONS (14)
  - Malaise [Recovering/Resolving]
  - Syncope [Unknown]
  - Anxiety [Unknown]
  - Weight increased [Unknown]
  - Hypersomnia [Unknown]
  - Dyspnoea [Unknown]
  - Increased appetite [Unknown]
  - Dyspnoea exertional [Unknown]
  - Stubbornness [Unknown]
  - Emphysema [Not Recovered/Not Resolved]
  - Oxygen saturation decreased [Recovering/Resolving]
  - Loss of consciousness [Unknown]
  - Agitation [Unknown]
  - Peripheral swelling [Unknown]
